FAERS Safety Report 9995657 (Version 1)
Quarter: 2014Q1

REPORT INFORMATION
  Report Type: Spontaneous
  Country: FR (occurrence: None)
  Receive Date: 20140307
  Receipt Date: 20140307
  Transmission Date: 20141002
  Serious: Yes (Hospitalization)
  Sender: FDA-Public Use
  Company Number: 7272110

PATIENT
  Age: 20 Year
  Sex: Female

DRUGS (3)
  1. LEVOTHYROX [Suspect]
     Indication: THYROIDITIS
     Route: 048
     Dates: start: 20130405, end: 20130409
  2. ADEPAL [Suspect]
     Indication: CONTRACEPTION
     Route: 048
     Dates: start: 200811, end: 20130409
  3. PROPRANOLOL (PROPRANOLOL) (PROPRANOLOL) [Concomitant]

REACTIONS (11)
  - Pulmonary embolism [None]
  - Thyroiditis [None]
  - Malaise [None]
  - Syncope [None]
  - Platelet count decreased [None]
  - Tachycardia [None]
  - Dilatation ventricular [None]
  - Deep vein thrombosis [None]
  - Deep vein thrombosis [None]
  - Ventricular dyskinesia [None]
  - Hypercoagulation [None]
